FAERS Safety Report 21806091 (Version 4)
Quarter: 2023Q2

REPORT INFORMATION
  Report Type: Spontaneous
  Country: DE (occurrence: DE)
  Receive Date: 20230102
  Receipt Date: 20230406
  Transmission Date: 20230722
  Serious: Yes (Life-Threatening, Hospitalization, Other)
  Sender: FDA-Public Use
  Company Number: DE-BoehringerIngelheim-2023-BI-210593

PATIENT
  Age: 79 Year
  Sex: Male
  Weight: 84 kg

DRUGS (14)
  1. JARDIANCE [Suspect]
     Active Substance: EMPAGLIFLOZIN
     Indication: Type 2 diabetes mellitus
     Dates: start: 202010
  2. JARDIANCE [Suspect]
     Active Substance: EMPAGLIFLOZIN
     Dates: start: 202104, end: 20221115
  3. TORSEMIDE [Concomitant]
     Active Substance: TORSEMIDE
     Indication: Coronary artery disease
     Route: 048
     Dates: start: 202112
  4. TORSEMIDE [Concomitant]
     Active Substance: TORSEMIDE
     Indication: Hypertension
  5. PRAVASTATIN [Concomitant]
     Active Substance: PRAVASTATIN
     Indication: Coronary artery disease
     Route: 048
     Dates: start: 201907
  6. PRAVASTATIN [Concomitant]
     Active Substance: PRAVASTATIN
     Indication: Blood cholesterol increased
     Route: 048
  7. ASPIRIN [Concomitant]
     Active Substance: ASPIRIN
     Indication: Coronary artery disease
     Route: 048
     Dates: start: 201704
  8. BISOPROLOL [Concomitant]
     Active Substance: BISOPROLOL
     Indication: Coronary artery disease
     Route: 048
     Dates: start: 202110
  9. BISOPROLOL [Concomitant]
     Active Substance: BISOPROLOL
     Indication: Hypertension
  10. Entresto 49 mg/51 mg [Concomitant]
     Indication: Product used for unknown indication
     Dosage: 1-0-1-0
  11. METFORMIN [Concomitant]
     Active Substance: METFORMIN HYDROCHLORIDE
     Indication: Product used for unknown indication
     Dosage: 1-0-1-0
  12. ALLOPURINOL [Concomitant]
     Active Substance: ALLOPURINOL
     Indication: Product used for unknown indication
     Dosage: 1-0-0
  13. Glyceroltrinitrat 0.8 mg [Concomitant]
     Indication: Chest discomfort
     Dosage: IF NEEDED FOR CHEST TIGHTNESS 1 CAPSULE
  14. SPIRONOLACTONE [Concomitant]
     Active Substance: SPIRONOLACTONE
     Indication: Product used for unknown indication

REACTIONS (26)
  - Dyspnoea [Recovered/Resolved]
  - Angina unstable [Unknown]
  - Genital infection [Recovered/Resolved]
  - Blood creatinine increased [Unknown]
  - Penile pain [Recovered/Resolved]
  - Peripheral swelling [Recovered/Resolved]
  - Penile swelling [Recovered/Resolved]
  - Dysuria [Recovered/Resolved]
  - Pain in extremity [Unknown]
  - Arthralgia [Unknown]
  - Immobile [Unknown]
  - Ejection fraction abnormal [Unknown]
  - Coronary artery stenosis [Unknown]
  - Cerebral artery stenosis [Unknown]
  - Bundle branch block left [Unknown]
  - Balanitis candida [Unknown]
  - Gait disturbance [Unknown]
  - Gait disturbance [Unknown]
  - Asthenia [Unknown]
  - Dyspnoea exertional [Unknown]
  - Fatigue [Unknown]
  - Headache [Unknown]
  - Thirst [Unknown]
  - Nocturia [Unknown]
  - General physical health deterioration [Unknown]
  - Phimosis [Unknown]

NARRATIVE: CASE EVENT DATE: 20210801
